FAERS Safety Report 5571439-6 (Version None)
Quarter: 2007Q4

REPORT INFORMATION
  Report Type: 
  Country: None (occurrence: None)
  Receive Date: 20071221
  Receipt Date: 20070226
  Transmission Date: 20080405
  Serious: No
  Sender: FDA-Public Use
  Company Number: A0640992A

PATIENT
  Sex: Male

DRUGS (2)
  1. TRIZIVIR [Suspect]
     Indication: ANTIVIRAL PROPHYLAXIS
     Dosage: 1TAB TWICE PER DAY
     Route: 048
     Dates: start: 20070224
  2. UNSPECIFIED DRUG [Concomitant]

REACTIONS (3)
  - MALAISE [None]
  - PHARMACEUTICAL PRODUCT COMPLAINT [None]
  - SOMNOLENCE [None]
